FAERS Safety Report 19811367 (Version 1)
Quarter: 2021Q3

REPORT INFORMATION
  Report Type: Spontaneous
  Country: CN (occurrence: CN)
  Receive Date: 20210909
  Receipt Date: 20210909
  Transmission Date: 20211014
  Serious: Yes (Life-Threatening)
  Sender: FDA-Public Use
  Company Number: CN-PFIZER INC-202101119726

PATIENT
  Age: 47 Year
  Sex: Female
  Weight: 50 kg

DRUGS (2)
  1. TAZOCIN [Suspect]
     Active Substance: PIPERACILLIN SODIUM\TAZOBACTAM SODIUM
     Indication: URINARY TRACT INFECTION
     Dosage: 4.5 G, 1X/DAY
     Route: 041
     Dates: start: 20210816, end: 20210816
  2. SODIUM CHLORIDE. [Concomitant]
     Active Substance: SODIUM CHLORIDE
     Indication: URINARY TRACT INFECTION
     Dosage: 100 ML, 1X/DAY
     Route: 041
     Dates: start: 20210816, end: 20210816

REACTIONS (2)
  - Laryngeal oedema [Recovering/Resolving]
  - Off label use [Unknown]

NARRATIVE: CASE EVENT DATE: 20210816
